FAERS Safety Report 6456879-5 (Version None)
Quarter: 2009Q4

REPORT INFORMATION
  Report Type: 
  Country: None (occurrence: None)
  Receive Date: 20091124
  Receipt Date: 20091124
  Transmission Date: 20100525
  Serious: No
  Sender: FDA-Public Use
  Company Number: None

PATIENT
  Age: 67 Year
  Sex: Female
  Weight: 57.6068 kg

DRUGS (4)
  1. FLECAINIDE ACETATE [Suspect]
  2. NEURONTIN [Suspect]
  3. COUMADIN [Concomitant]
  4. TOPOROL [Concomitant]

REACTIONS (2)
  - CARCINOID SYNDROME [None]
  - DRUG INTERACTION [None]
